FAERS Safety Report 16917549 (Version 9)
Quarter: 2020Q1

REPORT INFORMATION
  Report Type: Spontaneous
  Country: PT (occurrence: PT)
  Receive Date: 20191015
  Receipt Date: 20200107
  Transmission Date: 20200409
  Serious: Yes (Hospitalization, Other)
  Sender: FDA-Public Use
  Company Number: PT-AUROBINDO-AUR-APL-2019-066303

PATIENT
  Age: 74 Year
  Sex: Female

DRUGS (7)
  1. ALENDRONIC ACID 70 MG TABLETS [Suspect]
     Active Substance: ALENDRONIC ACID
     Dosage: 10 MILLIGRAM
     Route: 065
  2. PARACETAMOL 1G [Suspect]
     Active Substance: ACETAMINOPHEN
     Indication: PRODUCT USED FOR UNKNOWN INDICATION
     Dosage: 1000 MILLIGRAM
     Route: 065
  3. VITAMIN D [Suspect]
     Active Substance: VITAMIN D NOS
     Indication: OSTEOPOROSIS
     Dosage: 2800 INTERNATIONAL UNIT, EVERY WEEK (FOR ANOTHER FIVE YEARS)
     Route: 065
  4. ALENDRONIC ACID 70 MG TABLETS [Suspect]
     Active Substance: ALENDRONIC ACID
     Dosage: 70 MILLIGRAM, EVERY WEEK FOR 5 YEARS
     Route: 065
  5. METAMIZOLE MAGNESIUM [Concomitant]
     Active Substance: METAMIZOLE MAGNESIUM
     Indication: ARTHRALGIA
     Dosage: 575 MILLIGRAM
     Route: 065
  6. ALENDRONIC ACID 70 MG TABLETS [Suspect]
     Active Substance: ALENDRONIC ACID
     Indication: OSTEOPOROSIS
     Dosage: 10 MILLIGRAM, ONCE A DAY FOR 4 YEARS
     Route: 048
  7. ALENDRONIC ACID+COLECALCIFEROL  70MG/2800 IU TABLETS [Suspect]
     Active Substance: ALENDRONATE SODIUM\CHOLECALCIFEROL
     Indication: OSTEOPOROSIS
     Dosage: 1 DOSAGE FORM, EVERY WEEK (70 MG + 2800 IU WEEKLY)
     Route: 048

REACTIONS (5)
  - Drug ineffective [Unknown]
  - Atypical femur fracture [Unknown]
  - Arthralgia [Unknown]
  - Pain [Unknown]
  - Oedema [Unknown]
